FAERS Safety Report 10215173 (Version 2)
Quarter: 2014Q2

REPORT INFORMATION
  Report Type: Report from Study
  Country: US (occurrence: US)
  Receive Date: 20140603
  Receipt Date: 20140603
  Transmission Date: 20141212
  Serious: Yes (Hospitalization)
  Sender: FDA-Public Use
  Company Number: PHEH2014US010228

PATIENT
  Age: 40 Year
  Sex: Female

DRUGS (3)
  1. GILENYA [Suspect]
     Indication: RELAPSING-REMITTING MULTIPLE SCLEROSIS
     Dosage: 0.5 MG, QD
     Route: 048
     Dates: start: 20130801
  2. ACETAMINOPHEN (PARACETAMOL) [Suspect]
     Indication: FATIGUE
  3. AMANTADIN [Concomitant]
     Indication: FATIGUE

REACTIONS (4)
  - Cystitis [Unknown]
  - Urinary tract infection [Unknown]
  - Urinary retention [Unknown]
  - White blood cell count increased [Unknown]
